FAERS Safety Report 4509662-1 (Version None)
Quarter: 2004Q4

REPORT INFORMATION
  Report Type: 
  Country: None (occurrence: None)
  Receive Date: 20041119
  Receipt Date: 20041104
  Transmission Date: 20050328
  Serious: Yes (Hospitalization)
  Sender: FDA-Public Use
  Company Number: 207268

PATIENT
  Age: 61 Year
  Sex: Female
  Weight: 72.5755 kg

DRUGS (6)
  1. AVONEX [Suspect]
     Indication: MULTIPLE SCLEROSIS
     Dosage: 30 MCG QW IM
     Route: 030
     Dates: start: 20030101, end: 20040101
  2. AVONEX [Suspect]
     Indication: MULTIPLE SCLEROSIS
     Dosage: 30 MCG QW IM
     Route: 030
     Dates: start: 20040101
  3. ASPIRIN [Concomitant]
  4. GLUCOSAMINE W/CHONDROITIN SULFATES [Concomitant]
  5. MULTI-VITAMINS [Concomitant]
  6. VIOXX [Concomitant]

REACTIONS (9)
  - ARTHROPATHY [None]
  - BLOOD PRESSURE INCREASED [None]
  - CHONDROPATHY [None]
  - DYSURIA [None]
  - INFLUENZA LIKE ILLNESS [None]
  - INSOMNIA [None]
  - OSTEOPOROSIS [None]
  - PAIN EXACERBATED [None]
  - PYREXIA [None]
